FAERS Safety Report 5404363-X (Version None)
Quarter: 2007Q3

REPORT INFORMATION
  Report Type: 
  Country: None (occurrence: None)
  Receive Date: 20070802
  Receipt Date: 20070725
  Transmission Date: 20080115
  Serious: Yes (Hospitalization)
  Sender: FDA-Public Use
  Company Number: AU-ASTRAZENECA-2007AP04447

PATIENT
  Age: 26782 Day
  Sex: Male

DRUGS (7)
  1. CANDESARTAN CILEXETIL + HYDROCHLOROTHIAZIDE [Suspect]
     Indication: ESSENTIAL HYPERTENSION
     Route: 048
  2. LISINOPRIL [Suspect]
     Route: 048
  3. IBUPROFEN [Suspect]
     Route: 048
     Dates: start: 20070110
  4. DILTIAZEM HYDROCHLORIDE [Concomitant]
  5. METOPROLOL SUCCINATE [Concomitant]
  6. CALCIUM CARBONE [Concomitant]
  7. ALLOPURINOL [Concomitant]

REACTIONS (3)
  - HYPERKALAEMIA [None]
  - MALAISE [None]
  - RENAL FAILURE [None]
